FAERS Safety Report 20100905 (Version 3)
Quarter: 2022Q1

REPORT INFORMATION
  Report Type: Spontaneous
  Country: RO (occurrence: RO)
  Receive Date: 20211123
  Receipt Date: 20220118
  Transmission Date: 20220423
  Serious: Yes (Hospitalization, Other)
  Sender: FDA-Public Use
  Company Number: RO-VA000000599-2021001155

PATIENT
  Age: 54 Year
  Sex: Male

DRUGS (7)
  1. LEVOFLOXACIN [Suspect]
     Active Substance: LEVOFLOXACIN
     Indication: COVID-19
     Dosage: 500 MILLIGRAM, QD (500 MG PER DAY)
  2. LEVOFLOXACIN [Suspect]
     Active Substance: LEVOFLOXACIN
     Indication: Productive cough
  3. ACETAMINOPHEN [Suspect]
     Active Substance: ACETAMINOPHEN
     Indication: COVID-19
     Dosage: 500 MILLIGRAM, QD (1000 MILLIGRAM DAILY; PARACETAMOL 500 MG EVERY 12 HOURS)
  4. ACETAMINOPHEN [Suspect]
     Active Substance: ACETAMINOPHEN
     Indication: Renal failure
     Dosage: 500 MILLIGRAM, BID
  5. AZITHROMYCIN [Suspect]
     Active Substance: AZITHROMYCIN
     Indication: COVID-19
     Dosage: 500 MILLIGRAM, QD (AZITHROMYCIN 500 MG PER DAY)
  6. AZITHROMYCIN [Suspect]
     Active Substance: AZITHROMYCIN
     Indication: Renal failure
     Dosage: 500 MILLIGRAM, BID
  7. FLUCONAZOLE [Concomitant]
     Active Substance: FLUCONAZOLE
     Indication: COVID-19
     Dosage: UNK
     Route: 042

REACTIONS (11)
  - Mucormycosis [Recovering/Resolving]
  - Acute kidney injury [Recovering/Resolving]
  - COVID-19 [Unknown]
  - Condition aggravated [Unknown]
  - Joint injury [Recovering/Resolving]
  - Metabolic acidosis [Recovering/Resolving]
  - Osteonecrosis [Recovering/Resolving]
  - Pathological fracture [Recovering/Resolving]
  - Off label use [Unknown]
  - Drug ineffective [Recovered/Resolved]
  - Fall [Recovering/Resolving]
